FAERS Safety Report 8120342-6 (Version None)
Quarter: 2012Q1

REPORT INFORMATION
  Report Type: 
  Country: None (occurrence: None)
  Receive Date: 20120207
  Receipt Date: 20120131
  Transmission Date: 20120608
  Serious: Yes (Other)
  Sender: FDA-Public Use
  Company Number: US-VIIV HEALTHCARE LIMITED-A0963818A

PATIENT
  Age: 25 Year
  Sex: Female

DRUGS (6)
  1. EMTRIVA [Suspect]
     Indication: ANTIRETROVIRAL THERAPY
     Dosage: 200MGD PER DAY
     Route: 048
     Dates: start: 20110705
  2. TRUVADA [Suspect]
     Indication: ANTIRETROVIRAL THERAPY
     Dosage: 1TAB PER DAY
     Route: 048
     Dates: start: 20110705
  3. NORVIR [Suspect]
     Indication: ANTIRETROVIRAL THERAPY
     Dosage: 100MGD PER DAY
     Route: 048
     Dates: start: 20110705
  4. KALETRA [Suspect]
     Indication: ANTIRETROVIRAL THERAPY
     Dosage: 4TAB PER DAY
     Route: 048
     Dates: start: 20110509, end: 20110705
  5. COMBIVIR [Suspect]
     Indication: ANTIRETROVIRAL THERAPY
     Dosage: 1TAB PER DAY
     Route: 048
     Dates: start: 20110505, end: 20110705
  6. REYATAZ [Suspect]
     Indication: ANTIRETROVIRAL THERAPY
     Dosage: 400MGD PER DAY
     Route: 048
     Dates: start: 20110705

REACTIONS (3)
  - PRE-ECLAMPSIA [None]
  - STILLBIRTH [None]
  - MATERNAL EXPOSURE DURING PREGNANCY [None]
